FAERS Safety Report 22177342 (Version 1)
Quarter: 2023Q2

REPORT INFORMATION
  Report Type: Spontaneous
  Country: CA (occurrence: CA)
  Receive Date: 20230405
  Receipt Date: 20230405
  Transmission Date: 20230721
  Serious: No
  Sender: FDA-Public Use
  Company Number: CA-CHEMOCENTRYX, INC.-2023CACCXI0659

PATIENT

DRUGS (1)
  1. TAVNEOS [Suspect]
     Active Substance: AVACOPAN
     Indication: Product used for unknown indication

REACTIONS (2)
  - Product dispensing error [Unknown]
  - No adverse event [Unknown]
